FAERS Safety Report 5357556-4 (Version None)
Quarter: 2007Q2

REPORT INFORMATION
  Report Type: 
  Country: None (occurrence: None)
  Receive Date: 20070530
  Receipt Date: 20070110
  Transmission Date: 20071010
  Serious: Yes (Hospitalization)
  Sender: FDA-Public Use
  Company Number: USA050699811

PATIENT
  Age: 50 Year
  Sex: Male
  Weight: 95.5 kg

DRUGS (13)
  1. ZYPREXA [Suspect]
     Indication: DEPRESSION
     Dosage: 5 MG, DAILY (1/D), ORAL
     Route: 048
     Dates: start: 20010101, end: 20050602
  2. PLAVIX [Concomitant]
  3. NEXIUM [Concomitant]
  4. WELLBUTRIN [Concomitant]
  5. LESCOL XL [Concomitant]
  6. AVANDIA [Concomitant]
  7. RUSCORECTAL       (RUSCOGENIN) [Concomitant]
  8. METFORMIN HCL [Concomitant]
  9. LOPID [Concomitant]
  10. LISINOPRIL [Concomitant]
  11. TRAZODONE HCL [Concomitant]
  12. ASPIRIN [Concomitant]
  13. QUETIAPINE FUMARATE [Concomitant]

REACTIONS (6)
  - CHEST PAIN [None]
  - DIABETES MELLITUS [None]
  - DIARRHOEA [None]
  - DIZZINESS [None]
  - MALAISE [None]
  - VOMITING [None]
